FAERS Safety Report 24165630 (Version 1)
Quarter: 2024Q3

REPORT INFORMATION
  Report Type: Spontaneous
  Country: US (occurrence: US)
  Receive Date: 20240802
  Receipt Date: 20240802
  Transmission Date: 20241016
  Serious: No
  Sender: ROCHE
  Company Number: US-ROCHE-10000046179

PATIENT
  Sex: Female

DRUGS (3)
  1. XOLAIR [Suspect]
     Active Substance: OMALIZUMAB
     Indication: Chronic spontaneous urticaria
     Dosage: RECEIVED UP TO 450 MG EVERY 4 WEEKS
     Route: 065
  2. XOLAIR [Suspect]
     Active Substance: OMALIZUMAB
     Route: 065
  3. DAPSONE [Concomitant]
     Active Substance: DAPSONE
     Dosage: INCREASED DAPSONE FOR THE NEXT 4 WEEKS

REACTIONS (2)
  - Obesity [Unknown]
  - Off label use [Unknown]
